FAERS Safety Report 15316775 (Version 3)
Quarter: 2018Q4

REPORT INFORMATION
  Report Type: Spontaneous
  Country: PL (occurrence: PL)
  Receive Date: 20180824
  Receipt Date: 20181204
  Transmission Date: 20190204
  Serious: Yes (Other)
  Sender: FDA-Public Use
  Company Number: PHHY2018PL077236

PATIENT
  Age: 65 Year
  Sex: Female

DRUGS (22)
  1. LANSOPRAZOLE. [Interacting]
     Active Substance: LANSOPRAZOLE
     Indication: PRODUCT USED FOR UNKNOWN INDICATION
     Dosage: 15 MG / D
     Route: 048
  2. PROPAFENONE. [Interacting]
     Active Substance: PROPAFENONE
     Indication: ARRHYTHMIA
     Dosage: 450 MG / D
     Route: 048
  3. AMLODIPINE [Interacting]
     Active Substance: AMLODIPINE BESYLATE
     Indication: ATRIAL FIBRILLATION
  4. CANDESARTAN CILEXETIL+HYDROCHLOROTHIAZIDE [Interacting]
     Active Substance: CANDESARTAN CILEXETIL\HYDROCHLOROTHIAZIDE
     Indication: ARRHYTHMIA
  5. BUSPIRONE HYDROCHLORIDE. [Interacting]
     Active Substance: BUSPIRONE HYDROCHLORIDE
     Indication: DEPRESSION
     Dosage: 10 MG / D
     Route: 065
  6. AMITRIPTYLINE [Interacting]
     Active Substance: AMITRIPTYLINE
     Indication: DEPRESSION
     Dosage: 225 MG / D
     Route: 065
  7. ACETYLSALICYLIC ACID [Interacting]
     Active Substance: ASPIRIN
     Indication: ARRHYTHMIA
     Dosage: 75 MG / D
     Route: 048
  8. SULPIRIDE [Interacting]
     Active Substance: SULPIRIDE
     Indication: DEPRESSION
     Dosage: 150 MG / D
     Route: 065
  9. SERTRALINE [Interacting]
     Active Substance: SERTRALINE HYDROCHLORIDE
     Indication: DEPRESSION
     Dosage: 100 MG IN THE MORNING (GRADUALLY WITHDRAWN WITHIN 14 DAYS)
     Route: 048
  10. AMLODIPINE [Interacting]
     Active Substance: AMLODIPINE BESYLATE
     Indication: HYPERTENSION
     Dosage: 5 MG / D
     Route: 048
  11. CANDESARTAN CILEXETIL+HYDROCHLOROTHIAZIDE [Interacting]
     Active Substance: CANDESARTAN CILEXETIL\HYDROCHLOROTHIAZIDE
     Indication: ATRIAL FIBRILLATION
  12. LAMOTRIGIN [Interacting]
     Active Substance: LAMOTRIGINE
     Indication: DEPRESSION
     Dosage: 150 MG / D
     Route: 048
  13. VINPOCETINE [Interacting]
     Active Substance: VINPOCETINE
     Indication: DEPRESSION
     Dosage: 15 MG / D
     Route: 065
  14. ATORVASTATIN [Suspect]
     Active Substance: ATORVASTATIN
     Indication: HYPERLIPIDAEMIA
     Dosage: 20 MG, QD
     Route: 048
  15. AMLODIPINE [Interacting]
     Active Substance: AMLODIPINE BESYLATE
     Indication: ARRHYTHMIA
  16. AMITRIPTYLINE [Interacting]
     Active Substance: AMITRIPTYLINE
     Dosage: 25 MG, QD (GRADUALLY WITHDRAWN WITHIN 14 DAYS)
     Route: 065
  17. PROPAFENONE. [Interacting]
     Active Substance: PROPAFENONE
     Indication: ATRIAL FIBRILLATION
  18. LEVOMEPROMAZIN [Interacting]
     Active Substance: LEVOMEPROMAZINE
     Indication: DEPRESSION
     Dosage: 50 MG AT BEDTIME
     Route: 065
  19. CANDESARTAN CILEXETIL+HYDROCHLOROTHIAZIDE [Interacting]
     Active Substance: CANDESARTAN CILEXETIL\HYDROCHLOROTHIAZIDE
     Indication: HYPERTENSION
     Dosage: 1 DF, QD(16 MG + 12.5 MG DAILY)
     Route: 048
  20. PROPAFENONE. [Interacting]
     Active Substance: PROPAFENONE
     Indication: ARRHYTHMIA SUPRAVENTRICULAR
  21. ACETYLSALICYLIC ACID [Interacting]
     Active Substance: ASPIRIN
     Indication: ATRIAL FIBRILLATION
  22. PERAZINE [Interacting]
     Active Substance: PERAZINE
     Indication: DEPRESSION
     Dosage: 75 MG / D
     Route: 048

REACTIONS (23)
  - Depressed mood [Recovering/Resolving]
  - Fall [Recovered/Resolved]
  - Overweight [Unknown]
  - Depression [Recovering/Resolving]
  - Drug ineffective [Recovered/Resolved]
  - Drug interaction [Recovered/Resolved]
  - Sleep disorder [Recovering/Resolving]
  - Cognitive disorder [Recovered/Resolved]
  - Emotional poverty [Recovered/Resolved]
  - Anhedonia [Recovered/Resolved]
  - Amnesia [Recovering/Resolving]
  - Balance disorder [Recovered/Resolved]
  - Psychomotor retardation [Unknown]
  - Flat affect [Recovering/Resolving]
  - Extrapyramidal disorder [Recovered/Resolved]
  - Fatigue [Recovering/Resolving]
  - Bradykinesia [Recovered/Resolved]
  - Mental disorder [Recovering/Resolving]
  - Anxiety [Recovered/Resolved]
  - Dizziness [Recovered/Resolved]
  - Nervous system disorder [Unknown]
  - Disturbance in attention [Recovering/Resolving]
  - Somnolence [Recovered/Resolved]
